FAERS Safety Report 18339125 (Version 1)
Quarter: 2020Q3

REPORT INFORMATION
  Report Type: Spontaneous
  Country: US (occurrence: US)
  Receive Date: 20200930
  Receipt Date: 20200930
  Transmission Date: 20201103
  Serious: Yes (Hospitalization)
  Sender: FDA-Public Use
  Company Number: None

PATIENT
  Age: 61 Year
  Sex: Male
  Weight: 82.1 kg

DRUGS (1)
  1. LISINOPRIL (LISINOPRIL 10MG TAB) [Suspect]
     Active Substance: LISINOPRIL
     Indication: RENAL DISORDER PROPHYLAXIS
     Route: 048
     Dates: start: 20181031, end: 20200718

REACTIONS (8)
  - Drooling [None]
  - Angioedema [None]
  - Swelling face [None]
  - Tooth extraction [None]
  - Dyspnoea [None]
  - Dysphonia [None]
  - Swelling [None]
  - Swollen tongue [None]

NARRATIVE: CASE EVENT DATE: 20200718
